FAERS Safety Report 4520341-7 (Version None)
Quarter: 2004Q4

REPORT INFORMATION
  Report Type: 
  Country: None (occurrence: None)
  Receive Date: 20041207
  Receipt Date: 20041126
  Transmission Date: 20050328
  Serious: Yes (Life-Threatening, Hospitalization)
  Sender: FDA-Public Use
  Company Number: GB-GLAXOSMITHKLINE-B0358403A

PATIENT
  Age: 62 Year
  Sex: Female
  Weight: 75 kg

DRUGS (8)
  1. PAROXETINE [Suspect]
     Indication: DEPRESSION
     Dosage: 20MG UNKNOWN
     Route: 048
     Dates: start: 20041025
  2. BENDROFLUAZIDE [Suspect]
     Dosage: 2.5MG PER DAY
     Route: 065
     Dates: start: 19951101, end: 20041028
  3. ENALAPRIL [Suspect]
     Indication: BLOOD PRESSURE INCREASED
     Dosage: 20MG PER DAY
     Route: 048
     Dates: start: 20031101
  4. TERBUTALINE [Concomitant]
     Indication: CHRONIC OBSTRUCTIVE AIRWAYS DISEASE
  5. MEBEVERINE [Concomitant]
     Dosage: 135MG THREE TIMES PER DAY
     Route: 048
  6. AMLODIPINE [Concomitant]
     Indication: BLOOD PRESSURE INCREASED
     Dosage: 5MG PER DAY
     Route: 048
  7. DIAZEPAM [Concomitant]
     Dosage: 5MG AS REQUIRED
     Route: 065
  8. CHOLINE SALICYLATE [Concomitant]
     Route: 065

REACTIONS (4)
  - CONFUSIONAL STATE [None]
  - HYPONATRAEMIA [None]
  - NERVOUS SYSTEM DISORDER [None]
  - URINE OUTPUT DECREASED [None]
